FAERS Safety Report 21902204 (Version 3)
Quarter: 2023Q1

REPORT INFORMATION
  Report Type: Spontaneous
  Country: ES (occurrence: ES)
  Receive Date: 20230124
  Receipt Date: 20230220
  Transmission Date: 20230417
  Serious: Yes (Hospitalization, Other)
  Sender: FDA-Public Use
  Company Number: None

PATIENT
  Age: 65 Year
  Sex: Male

DRUGS (10)
  1. MYCOPHENOLATE MOFETIL [Suspect]
     Active Substance: MYCOPHENOLATE MOFETIL
     Indication: Immunosuppressant drug therapy
     Dosage: UNK
     Route: 065
     Dates: end: 2019
  2. EVEROLIMUS [Suspect]
     Active Substance: EVEROLIMUS
     Indication: Immunosuppressant drug therapy
     Dosage: UNK
     Route: 065
  3. EVEROLIMUS [Suspect]
     Active Substance: EVEROLIMUS
     Dosage: 2 MILLIGRAM
     Route: 065
     Dates: start: 20201002
  4. EVEROLIMUS [Suspect]
     Active Substance: EVEROLIMUS
     Dosage: 2 MILLIGRAM
     Route: 065
     Dates: start: 20201005
  5. EVEROLIMUS [Suspect]
     Active Substance: EVEROLIMUS
     Dosage: 2 MILLIGRAM
     Route: 065
     Dates: start: 20210111
  6. EVEROLIMUS [Suspect]
     Active Substance: EVEROLIMUS
     Dosage: 1.5 MILLIGRAM
     Route: 065
     Dates: start: 20220323
  7. CYCLOSPORINE [Suspect]
     Active Substance: CYCLOSPORINE
     Indication: Product used for unknown indication
     Dosage: 150 MILLIGRAM
     Route: 065
     Dates: start: 20201002
  8. CYCLOSPORINE [Suspect]
     Active Substance: CYCLOSPORINE
     Dosage: 150 MILLIGRAM
     Route: 065
     Dates: start: 20201005
  9. CYCLOSPORINE [Suspect]
     Active Substance: CYCLOSPORINE
     Dosage: 150 MILLIGRAM
     Route: 065
     Dates: start: 20210111
  10. CYCLOSPORINE [Suspect]
     Active Substance: CYCLOSPORINE
     Dosage: 50 MILLIGRAM
     Route: 065
     Dates: start: 20220323

REACTIONS (10)
  - Cardiac failure [Recovering/Resolving]
  - Confusional state [Unknown]
  - Obsessive thoughts [Unknown]
  - Delusion of replacement [Unknown]
  - Delusion of theft [Unknown]
  - Intrusive thoughts [Unknown]
  - Agitation [Unknown]
  - Jealous delusion [Unknown]
  - Insomnia [Unknown]
  - Affective disorder [Unknown]

NARRATIVE: CASE EVENT DATE: 20190101
